FAERS Safety Report 25263500 (Version 2)
Quarter: 2025Q2

REPORT INFORMATION
  Report Type: Report from Study
  Country: GB (occurrence: GB)
  Receive Date: 20250502
  Receipt Date: 20250512
  Transmission Date: 20250716
  Serious: Yes (Other)
  Sender: TAKEDA
  Company Number: GB-TAKEDA-2025TUS041470

PATIENT
  Sex: Female

DRUGS (1)
  1. FRUQUINTINIB [Suspect]
     Active Substance: FRUQUINTINIB
     Indication: Colon cancer metastatic
     Dates: start: 20241216, end: 20250320

REACTIONS (4)
  - Metastases to central nervous system [Unknown]
  - Colon cancer metastatic [Unknown]
  - Drug ineffective [Unknown]
  - Back pain [Unknown]
